FAERS Safety Report 18753618 (Version 4)
Quarter: 2021Q3

REPORT INFORMATION
  Report Type: Spontaneous
  Country: US (occurrence: US)
  Receive Date: 20210118
  Receipt Date: 20210810
  Transmission Date: 20211014
  Serious: Yes (Other)
  Sender: FDA-Public Use
  Company Number: US-JNJFOC-20210119901

PATIENT
  Age: 57 Year
  Sex: Male

DRUGS (9)
  1. ELMIRON [Suspect]
     Active Substance: PENTOSAN POLYSULFATE SODIUM
     Indication: URINARY TRACT PAIN
     Route: 048
     Dates: start: 1998, end: 2002
  2. CYCLOSPORINE. [Concomitant]
     Active Substance: CYCLOSPORINE
     Indication: TRANSPLANT
     Route: 065
     Dates: start: 1993, end: 2003
  3. IMURAN [Concomitant]
     Active Substance: AZATHIOPRINE
     Indication: TRANSPLANT
     Route: 065
     Dates: start: 1993, end: 2003
  4. PREDNISONE. [Concomitant]
     Active Substance: PREDNISONE
     Indication: TRANSPLANT
     Route: 065
     Dates: start: 1993, end: 2003
  5. PROGRAF [Concomitant]
     Active Substance: TACROLIMUS
     Indication: RENAL DISORDER
     Route: 065
     Dates: start: 2003
  6. NEORAL [Concomitant]
     Active Substance: CYCLOSPORINE
     Indication: TRANSPLANT
     Route: 065
     Dates: start: 1993, end: 2003
  7. ELMIRON [Suspect]
     Active Substance: PENTOSAN POLYSULFATE SODIUM
     Route: 048
     Dates: start: 1997
  8. CELLCEPT [Concomitant]
     Active Substance: MYCOPHENOLATE MOFETIL\MYCOPHENOLATE MOFETIL HYDROCHLORIDE
     Indication: RENAL DISORDER
     Route: 065
     Dates: start: 2003
  9. ELMIRON [Suspect]
     Active Substance: PENTOSAN POLYSULFATE SODIUM
     Indication: URETHRAL PAIN
     Route: 048
     Dates: start: 2002, end: 2006

REACTIONS (2)
  - Vision blurred [Unknown]
  - Visual impairment [Unknown]

NARRATIVE: CASE EVENT DATE: 201711
